FAERS Safety Report 16512514 (Version 2)
Quarter: 2019Q3

REPORT INFORMATION
  Report Type: Spontaneous
  Country: None (occurrence: US)
  Receive Date: 20190701
  Receipt Date: 20190701
  Transmission Date: 20191004
  Serious: No
  Sender: FDA-Public Use
  Company Number: US-GALDERMA-US19006624

PATIENT

DRUGS (3)
  1. PROACTIV MD DAILY OIL CONTROL SPF 30 [Suspect]
     Active Substance: AVOBENZONE\OCTISALATE\OCTOCRYLENE
     Indication: ACNE
     Route: 061
  2. PROACTIV MD DEEP CLEANSING FACE WASH [Concomitant]
     Active Substance: COSMETICS
     Indication: ACNE
     Route: 061
  3. PROACTIV MD ADAPALENE ACNE TREATMENT [Suspect]
     Active Substance: ADAPALENE
     Indication: ACNE
     Dosage: 0.1%
     Route: 061

REACTIONS (7)
  - Exposure during pregnancy [Recovered/Resolved]
  - Inappropriate schedule of product administration [Recovered/Resolved]
  - Pain of skin [Unknown]
  - Rash [Not Recovered/Not Resolved]
  - Skin burning sensation [Unknown]
  - Dry skin [Unknown]
  - Skin fissures [Unknown]
